FAERS Safety Report 6970257-1 (Version None)
Quarter: 2010Q3

REPORT INFORMATION
  Report Type: 
  Country: None (occurrence: None)
  Receive Date: 20100908
  Receipt Date: 20100825
  Transmission Date: 20110219
  Serious: Yes (Other)
  Sender: FDA-Public Use
  Company Number: PHHY2010US57487

PATIENT
  Sex: Female
  Weight: 111.11 kg

DRUGS (17)
  1. AREDIA [Suspect]
     Dosage: UNK
  2. CYTOXAN [Concomitant]
     Indication: CHEMOTHERAPY
  3. DOXORUBICIN HCL [Concomitant]
     Indication: CHEMOTHERAPY
  4. ADRIAMYCIN PFS [Concomitant]
     Indication: CHEMOTHERAPY
  5. FLUOROURACIL [Concomitant]
     Indication: CHEMOTHERAPY
  6. METHOTREXATE [Concomitant]
     Indication: CHEMOTHERAPY
  7. TAMOXIFEN CITRATE [Concomitant]
  8. PAXIL [Concomitant]
     Dosage: 40 MG, UNK
  9. ZYBAN [Concomitant]
     Dosage: 150 MG, BID
  10. PROVENTIL [Concomitant]
  11. RAXAR [Concomitant]
     Dosage: 400 MG DAILY
  12. FLAGYL [Concomitant]
     Dosage: 500 MG, TID
  13. VIOXX [Concomitant]
  14. BEXTRA [Concomitant]
  15. CELEBREX [Concomitant]
  16. EPINEPHRINE [Concomitant]
  17. LEVAQUIN [Concomitant]
     Dosage: 500 MG, QD

REACTIONS (71)
  - ABDOMINAL HERNIA [None]
  - ABDOMINAL HERNIA REPAIR [None]
  - ANXIETY DISORDER [None]
  - ARTERIOSPASM CORONARY [None]
  - ARTHRALGIA [None]
  - ASTHENIA [None]
  - ASTHMA [None]
  - BLOOD ALKALINE PHOSPHATASE INCREASED [None]
  - BLOOD CHLORIDE DECREASED [None]
  - BLOOD GLUCOSE INCREASED [None]
  - BLOOD SODIUM DECREASED [None]
  - BRONCHOSPASM [None]
  - BUNION OPERATION [None]
  - CELLULITIS [None]
  - CHRONIC OBSTRUCTIVE PULMONARY DISEASE [None]
  - CONTUSION [None]
  - CORONARY ARTERY DISEASE [None]
  - CYST [None]
  - DEPRESSION [None]
  - DIARRHOEA [None]
  - DYSPNOEA EXERTIONAL [None]
  - DYSURIA [None]
  - EPICONDYLITIS [None]
  - FATIGUE [None]
  - FOOT DEFORMITY [None]
  - FUNGAL INFECTION [None]
  - GASTROENTERITIS [None]
  - HAEMOGLOBIN INCREASED [None]
  - HAEMORRHOIDS [None]
  - HEADACHE [None]
  - HYPERKERATOSIS [None]
  - HYPERTENSION [None]
  - HYPOAESTHESIA [None]
  - INTERTRIGO [None]
  - LYMPHADENECTOMY [None]
  - LYMPHOEDEMA [None]
  - MASS [None]
  - MASS EXCISION [None]
  - MUSCULOSKELETAL CHEST PAIN [None]
  - MUSCULOSKELETAL PAIN [None]
  - MYALGIA [None]
  - NAUSEA [None]
  - NEUROMA [None]
  - OEDEMA PERIPHERAL [None]
  - OMENTECTOMY [None]
  - ORTHOPNOEA [None]
  - OSTEOARTHRITIS [None]
  - OSTEOTOMY [None]
  - PAIN IN EXTREMITY [None]
  - PAIN IN JAW [None]
  - PLATELET COUNT DECREASED [None]
  - PNEUMONIA [None]
  - POLLAKIURIA [None]
  - POLYPECTOMY [None]
  - PROTEIN TOTAL DECREASED [None]
  - PULMONARY CONGESTION [None]
  - RADICAL MASTECTOMY [None]
  - RECTAL POLYP [None]
  - RHINITIS ALLERGIC [None]
  - ROTATOR CUFF SYNDROME [None]
  - SINUSITIS [None]
  - SKIN PAPILLOMA [None]
  - SOFT TISSUE DISORDER [None]
  - STRESS URINARY INCONTINENCE [None]
  - THROMBOSIS IN DEVICE [None]
  - TINEA CRURIS [None]
  - TOOTH DISORDER [None]
  - TOOTH FRACTURE [None]
  - UPPER RESPIRATORY TRACT INFECTION [None]
  - VOMITING [None]
  - WOUND INFECTION [None]
